FAERS Safety Report 4785156-3 (Version None)
Quarter: 2005Q3

REPORT INFORMATION
  Report Type: 
  Country: None (occurrence: None)
  Receive Date: 20050928
  Receipt Date: 20050916
  Transmission Date: 20060218
  Serious: Yes (Hospitalization)
  Sender: FDA-Public Use
  Company Number: S05-FRA-03236-01

PATIENT
  Age: 71 Year
  Sex: Male

DRUGS (5)
  1. MEMANTINE HCL [Suspect]
     Dosage: 10  MG BID PO
     Route: 048
     Dates: start: 20030403, end: 20050629
  2. ARICEPT [Concomitant]
  3. PREVISCAN (FLUINDIONE) [Concomitant]
  4. LOVENOX [Concomitant]
  5. PENICILLIN G [Concomitant]

REACTIONS (14)
  - ALANINE AMINOTRANSFERASE INCREASED [None]
  - ASPARTATE AMINOTRANSFERASE INCREASED [None]
  - BLOOD LACTATE DEHYDROGENASE DECREASED [None]
  - C-REACTIVE PROTEIN INCREASED [None]
  - CONVULSION [None]
  - CREATINE PHOSPHOKINASE DECREASED [None]
  - CREATININE RENAL CLEARANCE DECREASED [None]
  - ERYSIPELAS [None]
  - GENERAL PHYSICAL HEALTH DETERIORATION [None]
  - PYREXIA [None]
  - TEMPORAL ARTERITIS [None]
  - THROMBOPHLEBITIS [None]
  - TRANSAMINASES INCREASED [None]
  - WEIGHT DECREASED [None]
